FAERS Safety Report 13580722 (Version 1)
Quarter: 2017Q2

REPORT INFORMATION
  Report Type: Spontaneous
  Country: US (occurrence: US)
  Receive Date: 20170525
  Receipt Date: 20170525
  Transmission Date: 20170830
  Serious: Yes (Hospitalization)
  Sender: FDA-Public Use
  Company Number: None

PATIENT
  Age: 65 Year
  Sex: Male
  Weight: 82 kg

DRUGS (1)
  1. SULFAMETHOXAZOLE/TRIMETHOPRIM [Suspect]
     Active Substance: SULFAMETHOXAZOLE\TRIMETHOPRIM
     Indication: WOUND DRAINAGE
     Dosage: 800/160 MG BID PO
     Route: 048
     Dates: start: 20161215, end: 20161216

REACTIONS (6)
  - Anaphylactic shock [None]
  - Type IV hypersensitivity reaction [None]
  - Septic shock [None]
  - Hypotension [None]
  - Leukocytosis [None]
  - Erythema [None]

NARRATIVE: CASE EVENT DATE: 20161216
